FAERS Safety Report 9453153 (Version 1)
Quarter: 2013Q3

REPORT INFORMATION
  Report Type: Spontaneous
  Country: US (occurrence: US)
  Receive Date: 20130812
  Receipt Date: 20130812
  Transmission Date: 20140515
  Serious: No
  Sender: FDA-Public Use
  Company Number: US-009507513-1308USA003599

PATIENT
  Sex: Female

DRUGS (2)
  1. MIRALAX [Suspect]
     Indication: ILL-DEFINED DISORDER
     Dosage: UNK, QD
     Route: 048
     Dates: start: 2008
  2. MIRALAX [Suspect]
     Indication: MEDICAL OBSERVATION
     Dosage: UNK, BID
     Route: 048
     Dates: start: 2008

REACTIONS (7)
  - Vomiting [Unknown]
  - Nausea [Unknown]
  - Diarrhoea [Unknown]
  - Overdose [Unknown]
  - Wrong technique in drug usage process [Unknown]
  - Off label use [Unknown]
  - Incorrect drug administration duration [Unknown]
